FAERS Safety Report 7222738-3 (Version None)
Quarter: 2011Q1

REPORT INFORMATION
  Report Type: 
  Country: None (occurrence: None)
  Receive Date: 20110106
  Receipt Date: 20110106
  Transmission Date: 20110831
  Serious: Yes (Other)
  Sender: FDA-Public Use
  Company Number: None

PATIENT
  Age: 82 Year
  Sex: Male
  Weight: 72.5755 kg

DRUGS (1)
  1. FAREHEME [Suspect]

REACTIONS (3)
  - HERPES ZOSTER [None]
  - MYOCARDIAL INFARCTION [None]
  - ANAPHYLACTIC SHOCK [None]
